FAERS Safety Report 14314919 (Version 12)
Quarter: 2024Q3

REPORT INFORMATION
  Report Type: Spontaneous
  Country: GR (occurrence: GR)
  Receive Date: 20171221
  Receipt Date: 20240930
  Transmission Date: 20241017
  Serious: Yes (Other)
  Sender: ELI LILLY AND CO
  Company Number: GR-ASTRAZENECA-2017SF25111

PATIENT
  Age: 62 Year
  Sex: Female

DRUGS (45)
  1. GEMCITABINE HYDROCHLORIDE [Suspect]
     Active Substance: GEMCITABINE HYDROCHLORIDE
     Indication: Breast cancer metastatic
     Dosage: 01 DF, CYCLICAL
     Route: 065
     Dates: start: 2009
  2. GEMCITABINE HYDROCHLORIDE [Suspect]
     Active Substance: GEMCITABINE HYDROCHLORIDE
     Indication: Recurrent cancer
     Dosage: 1 DF, DAILY
     Route: 065
     Dates: start: 2009
  3. GEMCITABINE HYDROCHLORIDE [Suspect]
     Active Substance: GEMCITABINE HYDROCHLORIDE
     Dosage: 01 DF, CYCLICAL
     Route: 065
  4. ADO-TRASTUZUMAB EMTANSINE [Suspect]
     Active Substance: ADO-TRASTUZUMAB EMTANSINE
     Indication: Breast cancer metastatic
     Dosage: 01 DF, CYCLICAL
     Route: 065
     Dates: start: 2009
  5. ADO-TRASTUZUMAB EMTANSINE [Suspect]
     Active Substance: ADO-TRASTUZUMAB EMTANSINE
     Indication: Recurrent cancer
     Dosage: 1 DF, DAILY
     Route: 065
     Dates: start: 2009
  6. ADO-TRASTUZUMAB EMTANSINE [Suspect]
     Active Substance: ADO-TRASTUZUMAB EMTANSINE
     Dosage: 01 DF, CYCLICAL
     Route: 065
  7. CARBOPLATIN [Suspect]
     Active Substance: CARBOPLATIN
     Indication: Breast cancer metastatic
     Dosage: 01 DF, CYCLICAL
     Route: 065
     Dates: start: 2009
  8. CARBOPLATIN [Suspect]
     Active Substance: CARBOPLATIN
     Indication: Recurrent cancer
     Dosage: 1 DF, DAILY
     Route: 065
     Dates: start: 2009
  9. CARBOPLATIN [Suspect]
     Active Substance: CARBOPLATIN
     Dosage: 01 DF, CYCLICAL
     Route: 065
  10. CAPECITABINE [Suspect]
     Active Substance: CAPECITABINE
     Indication: Breast cancer metastatic
     Dosage: 1 DF, CYCLICAL
     Route: 065
     Dates: start: 2009
  11. CAPECITABINE [Suspect]
     Active Substance: CAPECITABINE
     Indication: Recurrent cancer
     Dosage: 1 DF, DAILY
     Route: 065
     Dates: start: 2009
  12. CAPECITABINE [Suspect]
     Active Substance: CAPECITABINE
     Dosage: 1 DF, CYCLICAL
     Route: 065
  13. FULVESTRANT [Suspect]
     Active Substance: FULVESTRANT
     Indication: Breast cancer metastatic
     Dosage: 01 DF, CYCLICAL
     Route: 030
     Dates: start: 2009
  14. FULVESTRANT [Suspect]
     Active Substance: FULVESTRANT
     Indication: Recurrent cancer
     Dosage: 1 DF, DAILY
     Route: 030
     Dates: start: 2009
  15. FULVESTRANT [Suspect]
     Active Substance: FULVESTRANT
     Indication: Metastatic malignant melanoma
     Dosage: 01 DF, CYCLICAL
     Route: 030
  16. METHOTREXATE SODIUM [Suspect]
     Active Substance: METHOTREXATE SODIUM
     Indication: Breast cancer metastatic
     Dosage: 01 DF, CYCLICAL
     Route: 065
     Dates: start: 2006
  17. METHOTREXATE SODIUM [Suspect]
     Active Substance: METHOTREXATE SODIUM
     Dosage: 1 DF, DAILY
     Route: 065
     Dates: start: 2006
  18. TYKERB [Suspect]
     Active Substance: LAPATINIB DITOSYLATE
     Indication: Recurrent cancer
     Dosage: 01 DF, CYCLICAL
     Route: 065
     Dates: start: 2009
  19. TYKERB [Suspect]
     Active Substance: LAPATINIB DITOSYLATE
     Indication: Breast cancer metastatic
     Dosage: 1 DF, DAILY
     Route: 065
  20. TYKERB [Suspect]
     Active Substance: LAPATINIB DITOSYLATE
     Indication: Metastatic malignant melanoma
     Dosage: 01 DF, CYCLICAL
     Route: 065
  21. DOXORUBICIN HYDROCHLORIDE [Suspect]
     Active Substance: DOXORUBICIN HYDROCHLORIDE
     Indication: Recurrent cancer
     Dosage: 01 DF, CYCLICAL
     Route: 065
     Dates: start: 2009
  22. DOXORUBICIN HYDROCHLORIDE [Suspect]
     Active Substance: DOXORUBICIN HYDROCHLORIDE
     Indication: Breast cancer metastatic
     Dosage: 1 DF, DAILY
     Route: 065
     Dates: start: 2009
  23. ERIBULIN [Suspect]
     Active Substance: ERIBULIN
     Indication: Breast cancer metastatic
     Dosage: 1 DF, CYCLIC COMBINATION WITH TRASTUZUMAB
     Route: 065
     Dates: start: 2009
  24. ERIBULIN [Suspect]
     Active Substance: ERIBULIN
     Indication: Recurrent cancer
  25. TAMOXIFEN CITRATE [Suspect]
     Active Substance: TAMOXIFEN CITRATE
     Indication: Recurrent cancer
     Dosage: 01 DF, CYCLICAL
     Route: 048
     Dates: start: 2009
  26. TAMOXIFEN CITRATE [Suspect]
     Active Substance: TAMOXIFEN CITRATE
     Indication: Breast cancer metastatic
  27. EXEMESTANE [Suspect]
     Active Substance: EXEMESTANE
     Indication: Breast cancer metastatic
     Dosage: 01 DF, CYCLICAL
     Route: 065
     Dates: start: 2009
  28. EXEMESTANE [Suspect]
     Active Substance: EXEMESTANE
     Indication: Recurrent cancer
     Dosage: 1 DF, DAILY
     Route: 065
     Dates: start: 2009
  29. EXEMESTANE [Suspect]
     Active Substance: EXEMESTANE
     Dosage: 01 DF, CYCLICAL
     Route: 065
  30. FLUOROURACIL [Suspect]
     Active Substance: FLUOROURACIL
     Indication: Breast cancer metastatic
     Dosage: 1 DF, CYCLICAL
     Route: 065
     Dates: start: 2006
  31. FLUOROURACIL [Suspect]
     Active Substance: FLUOROURACIL
     Dosage: 1 DF, DAILY
     Route: 065
     Dates: start: 2006
  32. FLUOROURACIL [Suspect]
     Active Substance: FLUOROURACIL
     Dosage: 1 DF, CYCLICAL
     Route: 065
  33. EVEROLIMUS [Suspect]
     Active Substance: EVEROLIMUS
     Indication: Breast cancer metastatic
     Dosage: 01 DF, CYCLICAL
     Route: 065
     Dates: start: 2009
  34. EVEROLIMUS [Suspect]
     Active Substance: EVEROLIMUS
     Indication: Recurrent cancer
     Dosage: 1 DF, DAILY
     Route: 065
     Dates: start: 2009
  35. EVEROLIMUS [Suspect]
     Active Substance: EVEROLIMUS
     Indication: Prophylaxis against transplant rejection
     Dosage: 01 DF, CYCLICAL
     Route: 065
     Dates: start: 2009
  36. EVEROLIMUS [Suspect]
     Active Substance: EVEROLIMUS
     Indication: Breast cancer
  37. VINORELBINE [Suspect]
     Active Substance: VINORELBINE TARTRATE
     Indication: Breast cancer metastatic
     Dosage: 01 DF, CYCLICAL
     Route: 065
     Dates: start: 2009
  38. VINORELBINE [Suspect]
     Active Substance: VINORELBINE TARTRATE
     Indication: Recurrent cancer
     Dosage: 1 DF, DAILY
     Route: 065
     Dates: start: 2009
  39. VINORELBINE [Suspect]
     Active Substance: VINORELBINE TARTRATE
     Dosage: 01 DF, CYCLICAL
     Route: 065
  40. PACLITAXEL [Suspect]
     Active Substance: PACLITAXEL
     Indication: Breast cancer metastatic
     Dosage: 01 DF, CYCLICAL
     Route: 065
     Dates: start: 2006
  41. EPIRUBICIN [Suspect]
     Active Substance: EPIRUBICIN
     Indication: Breast cancer metastatic
     Dosage: 01 DF, CYCLICAL
     Route: 001
     Dates: start: 2006
  42. EPIRUBICIN [Suspect]
     Active Substance: EPIRUBICIN
     Indication: Recurrent cancer
  43. DOCETAXEL [Suspect]
     Active Substance: DOCETAXEL\DOCETAXEL ANHYDROUS
     Indication: Breast cancer metastatic
     Dosage: 01 DF, CYCLICAL
     Route: 065
     Dates: start: 2009
  44. DOCETAXEL [Suspect]
     Active Substance: DOCETAXEL\DOCETAXEL ANHYDROUS
     Indication: Recurrent cancer
  45. CYCLOPHOSPHAMIDE [Suspect]
     Active Substance: CYCLOPHOSPHAMIDE
     Indication: Breast cancer metastatic
     Dosage: 01 DF, CYCLICAL
     Route: 065
     Dates: start: 2006

REACTIONS (9)
  - Metastases to lymph nodes [Unknown]
  - Metastases to lung [Unknown]
  - Metastases to skin [Unknown]
  - Metastases to bone [Unknown]
  - Skin mass [Unknown]
  - Recurrent cancer [Unknown]
  - Hormone receptor positive breast cancer [Unknown]
  - Malignant neoplasm progression [Unknown]
  - Off label use [Unknown]

NARRATIVE: CASE EVENT DATE: 20090101
